FAERS Safety Report 12101798 (Version 1)
Quarter: 2016Q1

REPORT INFORMATION
  Report Type: Spontaneous
  Country: US (occurrence: US)
  Receive Date: 20160222
  Receipt Date: 20160222
  Transmission Date: 20160526
  Serious: Yes (Other)
  Sender: FDA-Public Use
  Company Number: US-ACI HEALTHCARE LIMITED-1048217

PATIENT
  Age: 58 Year
  Sex: Female
  Weight: 87.53 kg

DRUGS (5)
  1. GABAPENTIN. [Suspect]
     Active Substance: GABAPENTIN
     Route: 048
  2. NORTRIPTYLINE HYDROCHLORIDE. [Suspect]
     Active Substance: NORTRIPTYLINE HYDROCHLORIDE
     Dates: start: 2009
  3. VENLAFAXINE [Suspect]
     Active Substance: VENLAFAXINE HYDROCHLORIDE
     Dates: start: 2009
  4. CLONAZEPAM. [Suspect]
     Active Substance: CLONAZEPAM
     Dates: start: 2009
  5. LIDOCAINE PATCH [Concomitant]
     Active Substance: LIDOCAINE

REACTIONS (9)
  - Weight increased [Unknown]
  - Neuropathy peripheral [Recovering/Resolving]
  - Asthenia [Unknown]
  - Arthritis [Unknown]
  - Spinal fusion surgery [Recovered/Resolved]
  - Exostosis [Recovered/Resolved]
  - Hip arthroplasty [Recovered/Resolved]
  - Drug ineffective for unapproved indication [Recovering/Resolving]
  - Hypertension [Unknown]

NARRATIVE: CASE EVENT DATE: 2011
